FAERS Safety Report 5753010-6 (Version None)
Quarter: 2008Q2

REPORT INFORMATION
  Report Type: 
  Country: None (occurrence: None)
  Receive Date: 20080527
  Receipt Date: 20080512
  Transmission Date: 20081010
  Serious: Yes (Hospitalization)
  Sender: FDA-Public Use
  Company Number: DSA_31859_2008

PATIENT
  Age: 44 Year
  Sex: Female

DRUGS (3)
  1. TAVOR /00273201/ (TAVOR - LORAZEPAM) (NOT SPECIFIC) [Suspect]
     Indication: DRUG USE FOR UNKNOWN INDICATION
     Dosage: DF ORAL
     Route: 048
  2. MADOPAR /00349201/ (MADOPAR - BENSERAZIDE HYDROCHLORIDE / LEVODOPA) (N [Suspect]
     Indication: DRUG USE FOR UNKNOWN INDICATION
     Dosage: DF ORAL
     Route: 048
  3. TASMAR [Suspect]
     Indication: DRUG USE FOR UNKNOWN INDICATION
     Dosage: 100 MG QID ORAL
     Route: 048
     Dates: start: 20080501

REACTIONS (4)
  - DRUG INEFFECTIVE [None]
  - DYSARTHRIA [None]
  - DYSKINESIA [None]
  - SENSORY DISTURBANCE [None]
